FAERS Safety Report 23397179 (Version 2)
Quarter: 2024Q2

REPORT INFORMATION
  Report Type: Spontaneous
  Country: US (occurrence: US)
  Receive Date: 20240112
  Receipt Date: 20240605
  Transmission Date: 20240716
  Serious: No
  Sender: FDA-Public Use
  Company Number: US-BIOGEN-2019BI00768813

PATIENT
  Sex: Male

DRUGS (3)
  1. TECFIDERA [Suspect]
     Active Substance: DIMETHYL FUMARATE
     Indication: Multiple sclerosis
     Dosage: RE-STARTED
     Route: 050
     Dates: start: 20190514, end: 20200130
  2. TECFIDERA [Suspect]
     Active Substance: DIMETHYL FUMARATE
     Route: 050
     Dates: start: 20161107, end: 20161201
  3. TECFIDERA [Suspect]
     Active Substance: DIMETHYL FUMARATE
     Dosage: UNSPECIFIED WHEN STOPPED
     Route: 050
     Dates: start: 20150721

REACTIONS (2)
  - Gastrointestinal disorder [Unknown]
  - Flushing [Unknown]
